FAERS Safety Report 4440368-3 (Version None)
Quarter: 2004Q3

REPORT INFORMATION
  Report Type: 
  Country: None (occurrence: None)
  Receive Date: 20040831
  Receipt Date: 20040519
  Transmission Date: 20050211
  Serious: No
  Sender: FDA-Public Use
  Company Number: 701992

PATIENT
  Age: 54 Year
  Sex: Female
  Weight: 86.1834 kg

DRUGS (2)
  1. AMEVIVE [Suspect]
     Indication: PSORIASIS
     Dosage: 15 MG QW IM
     Route: 030
     Dates: start: 20031001, end: 20031201
  2. METHOTREXATE [Concomitant]

REACTIONS (1)
  - PSORIASIS [None]
